FAERS Safety Report 7792953-9 (Version None)
Quarter: 2011Q4

REPORT INFORMATION
  Report Type: 
  Country: None (occurrence: None)
  Receive Date: 20111003
  Receipt Date: 20110927
  Transmission Date: 20120403
  Serious: Yes (Death)
  Sender: FDA-Public Use
  Company Number: PHEH2011US05276

PATIENT
  Sex: Female

DRUGS (10)
  1. NEURONTIN [Concomitant]
     Dosage: 100 MG, UNK
  2. TASIGNA [Suspect]
     Dosage: 200 MG, BID
     Route: 048
  3. RENAGEL [Concomitant]
  4. ASPIRIN [Concomitant]
  5. CRESTOR [Concomitant]
  6. COREG [Concomitant]
     Dosage: 10 MG, UNK
  7. STOOL SOFTENER [Concomitant]
  8. WARFARIN SODIUM [Concomitant]
  9. OMEPRAZOLE [Concomitant]
  10. LUCENTIS [Concomitant]

REACTIONS (1)
  - DEATH [None]
